FAERS Safety Report 12134444 (Version 1)
Quarter: 2016Q1

REPORT INFORMATION
  Report Type: Spontaneous
  Country: US (occurrence: US)
  Receive Date: 20160301
  Receipt Date: 20160301
  Transmission Date: 20160526
  Serious: No
  Sender: FDA-Public Use
  Company Number: US-TEVA-637790USA

PATIENT
  Age: 4 Decade
  Sex: Male

DRUGS (1)
  1. TRISENOX [Suspect]
     Active Substance: ARSENIC TRIOXIDE
     Route: 065
     Dates: end: 20160111

REACTIONS (2)
  - Palpitations [Unknown]
  - Blood triglycerides increased [Unknown]
